FAERS Safety Report 5503309-3 (Version None)
Quarter: 2007Q4

REPORT INFORMATION
  Report Type: 
  Country: None (occurrence: None)
  Receive Date: 20071031
  Receipt Date: 20071023
  Transmission Date: 20080405
  Serious: Yes (Other)
  Sender: FDA-Public Use
  Company Number: GB-PFIZER INC-2007085289

PATIENT
  Sex: Female
  Weight: 126 kg

DRUGS (3)
  1. CHAMPIX [Suspect]
     Indication: SMOKING CESSATION THERAPY
     Route: 048
     Dates: start: 20070806, end: 20070915
  2. CITALOPRAM HYDROBROMIDE [Concomitant]
     Route: 048
  3. MEBEVERINE [Concomitant]
     Route: 048

REACTIONS (5)
  - ARTHRALGIA [None]
  - JOINT SWELLING [None]
  - MALAISE [None]
  - NAUSEA [None]
  - PYREXIA [None]
